FAERS Safety Report 5078945-1 (Version None)
Quarter: 2006Q3

REPORT INFORMATION
  Report Type: 
  Country: None (occurrence: None)
  Receive Date: 20060814
  Receipt Date: 20060803
  Transmission Date: 20061208
  Serious: Yes (Death, Life-Threatening)
  Sender: FDA-Public Use
  Company Number: GB-JNJFOC-20050502707

PATIENT
  Age: 35 Year
  Sex: Male

DRUGS (4)
  1. DURAGESIC-100 [Suspect]
     Route: 042
  2. DURAGESIC-100 [Suspect]
     Route: 042
  3. DURAGESIC-100 [Suspect]
     Indication: CROHN'S DISEASE
     Route: 042
  4. CYCLIZINE [Concomitant]

REACTIONS (2)
  - DEATH [None]
  - DRUG ADMINISTRATION ERROR [None]
